FAERS Safety Report 9090875 (Version 2)
Quarter: 2013Q1

REPORT INFORMATION
  Report Type: Spontaneous
  Country: US (occurrence: US)
  Receive Date: 20130219
  Receipt Date: 20130227
  Transmission Date: 20140127
  Serious: Yes (Other)
  Sender: FDA-Public Use
  Company Number: US-AMGEN-USASP2013010809

PATIENT
  Age: 35 Year
  Sex: Male
  Weight: 100 kg

DRUGS (1)
  1. ENBREL [Suspect]
     Indication: PSORIASIS
     Dosage: 50 MG, QWK
     Route: 058
     Dates: start: 200904, end: 201206

REACTIONS (4)
  - Peroneal nerve palsy [Recovering/Resolving]
  - Nuclear magnetic resonance imaging abnormal [Unknown]
  - Hypoaesthesia [Recovering/Resolving]
  - Muscular weakness [Recovering/Resolving]
